FAERS Safety Report 25015778 (Version 1)
Quarter: 2025Q1

REPORT INFORMATION
  Report Type: Spontaneous
  Country: ES (occurrence: ES)
  Receive Date: 20250227
  Receipt Date: 20250227
  Transmission Date: 20250409
  Serious: Yes (Other)
  Sender: SANOFI AVENTIS
  Company Number: None

PATIENT
  Age: 13 Year
  Sex: Female

DRUGS (2)
  1. DUPIXENT [Suspect]
     Active Substance: DUPILUMAB
     Indication: Food allergy
     Dosage: 300 MG, QM
     Route: 058
     Dates: start: 20241122, end: 20241219
  2. ALBUTEROL [Concomitant]
     Active Substance: ALBUTEROL
     Dosage: 200 UG, Q4H
     Route: 055
     Dates: start: 20231130

REACTIONS (3)
  - Erythema multiforme [Recovered/Resolved]
  - Inappropriate schedule of product administration [Unknown]
  - Product use in unapproved indication [Unknown]

NARRATIVE: CASE EVENT DATE: 20241122
